FAERS Safety Report 10375983 (Version 3)
Quarter: 2014Q3

REPORT INFORMATION
  Report Type: Spontaneous
  Country: US (occurrence: None)
  Receive Date: 20140801
  Receipt Date: 20140903
  Transmission Date: 20150326
  Serious: Yes (Hospitalization)
  Sender: FDA-Public Use
  Company Number: UNT-2014-004563

PATIENT
  Age: 77 Year
  Sex: Female
  Weight: 59 kg

DRUGS (5)
  1. TRACLEER [Concomitant]
     Active Substance: BOSENTAN\BOSENTAN MONOHYDRATE
  2. REMODULIN [Suspect]
     Active Substance: TREPROSTINIL
     Indication: PULMONARY HYPERTENSION
     Route: 041
     Dates: start: 20121017
  3. WARFARIN [Concomitant]
     Active Substance: WARFARIN
  4. REMODULIN [Suspect]
     Active Substance: TREPROSTINIL
     Indication: COR PULMONALE CHRONIC
     Route: 041
     Dates: start: 20121017
  5. LETAIRIS [Concomitant]
     Active Substance: AMBRISENTAN

REACTIONS (7)
  - Injection site thrombosis [None]
  - Oedema [None]
  - Device connection issue [None]
  - Cardiac disorder [None]
  - Condition aggravated [None]
  - Right ventricular failure [None]
  - Pulmonary arterial hypertension [None]

NARRATIVE: CASE EVENT DATE: 201407
